FAERS Safety Report 22206736 (Version 3)
Quarter: 2023Q2

REPORT INFORMATION
  Report Type: Report from Study
  Country: US (occurrence: US)
  Receive Date: 20230413
  Receipt Date: 20230525
  Transmission Date: 20230722
  Serious: Yes (Hospitalization)
  Sender: FDA-Public Use
  Company Number: US-ELI_LILLY_AND_COMPANY-US202304004630

PATIENT
  Age: 80 Year
  Sex: Female
  Weight: 86.621 kg

DRUGS (21)
  1. TRULICITY [Suspect]
     Active Substance: DULAGLUTIDE
     Indication: Type 2 diabetes mellitus
     Dosage: 1.5 MG, WEEKLY (1/W)
     Route: 058
  2. TRULICITY [Suspect]
     Active Substance: DULAGLUTIDE
     Dosage: 0.75 MG, WEEKLY (1/W)
     Route: 058
     Dates: start: 20230428
  3. COREG [Concomitant]
     Active Substance: CARVEDILOL
     Dosage: 12.5 MG, BID
     Route: 048
     Dates: start: 20220906
  4. DEMADEX [Concomitant]
     Active Substance: TORSEMIDE
     Dosage: 5 MG, BID
     Dates: start: 20230408
  5. ECOTRIN [Concomitant]
     Active Substance: ASPIRIN
     Dosage: 81 MG, EACH MORNING
     Route: 048
  6. ESTRACE [Concomitant]
     Active Substance: ESTRADIOL
     Dosage: 0.5 G, 3/W
     Route: 067
     Dates: start: 20230309
  7. HUMULIN N [Concomitant]
     Active Substance: INSULIN HUMAN
     Dosage: UNK, PRN
     Dates: start: 20221212
  8. LIPITOR [Concomitant]
     Active Substance: ATORVASTATIN CALCIUM
     Dosage: 20 MG, DAILY
     Route: 048
     Dates: start: 20220914
  9. LIPITOR [Concomitant]
     Active Substance: ATORVASTATIN CALCIUM
     Dosage: 40 MG, DAILY
     Route: 048
     Dates: start: 20220331
  10. LIPITOR [Concomitant]
     Active Substance: ATORVASTATIN CALCIUM
     Dosage: 60 MG, DAILY
     Route: 048
  11. MICARDIS [Concomitant]
     Active Substance: TELMISARTAN
     Dosage: 80 MG, DAILY
     Dates: start: 20230508
  12. NORVASC [Concomitant]
     Active Substance: AMLODIPINE BESYLATE
     Dosage: 10 MG, EACH MORNING
     Dates: start: 20230408
  13. NOVOLIN N [Concomitant]
     Active Substance: INSULIN HUMAN
     Dosage: UNK
     Route: 058
     Dates: start: 20221212
  14. NARCAN [Concomitant]
     Active Substance: NALOXONE HYDROCHLORIDE
     Dosage: UNK
     Route: 045
     Dates: start: 20221020
  15. PRILOSEC [Concomitant]
     Active Substance: OMEPRAZOLE MAGNESIUM
     Dosage: 40 MG, DAILY
     Dates: start: 20230508
  16. TOPAMAX [Concomitant]
     Active Substance: TOPIRAMATE
     Dosage: 150 MG, DAILY
     Route: 048
     Dates: start: 20230214
  17. ULTRAM [Concomitant]
     Active Substance: TRAMADOL HYDROCHLORIDE
     Indication: Pain
     Dosage: 50 MG, BID
     Route: 048
     Dates: start: 20230214
  18. VITAMIN C [Concomitant]
     Active Substance: ASCORBIC ACID
     Dosage: 500 MG, BID
     Route: 048
  19. XANAX [Concomitant]
     Active Substance: ALPRAZOLAM
     Indication: Sleep disorder
     Dosage: 1 MG, PRN
     Route: 048
     Dates: start: 20230425
  20. ZOFRAN [Concomitant]
     Active Substance: ONDANSETRON HYDROCHLORIDE
     Indication: Nausea
     Dosage: 4 MG, EVERY 8 HRS
     Route: 048
  21. ZOFRAN [Concomitant]
     Active Substance: ONDANSETRON HYDROCHLORIDE
     Indication: Vomiting

REACTIONS (6)
  - Blood glucose decreased [Recovered/Resolved]
  - Bowel movement irregularity [Unknown]
  - Nausea [Unknown]
  - Hypoglycaemia [Unknown]
  - Weight decreased [Unknown]
  - Obstructive sleep apnoea syndrome [Unknown]

NARRATIVE: CASE EVENT DATE: 20230401
